FAERS Safety Report 25780413 (Version 1)
Quarter: 2025Q3

REPORT INFORMATION
  Report Type: Spontaneous
  Country: EU (occurrence: EU)
  Receive Date: 20250909
  Receipt Date: 20250909
  Transmission Date: 20251021
  Serious: Yes (Death, Other)
  Sender: AMGEN
  Company Number: EU-AMGEN-ESPSP2025174708

PATIENT
  Age: 37 Year
  Sex: Female

DRUGS (2)
  1. CINACALCET HYDROCHLORIDE [Suspect]
     Active Substance: CINACALCET HYDROCHLORIDE
     Indication: Hyperparathyroidism primary
     Route: 065
  2. LEVOTHYROXINE [Concomitant]
     Active Substance: LEVOTHYROXINE

REACTIONS (9)
  - Sepsis [Fatal]
  - Deafness [Unknown]
  - Melanocytic naevus [Unknown]
  - Fibrous histiocytoma [Unknown]
  - Hyperhidrosis [Unknown]
  - Hypercalcaemia [Unknown]
  - Sleep disorder [Unknown]
  - Blood parathyroid hormone increased [Unknown]
  - Osteopenia [Unknown]
